FAERS Safety Report 21765254 (Version 1)
Quarter: 2022Q4

REPORT INFORMATION
  Report Type: Report from Study
  Country: US (occurrence: US)
  Receive Date: 20221222
  Receipt Date: 20221222
  Transmission Date: 20230112
  Serious: No
  Sender: FDA-Public Use
  Company Number: US-Accord-274244

PATIENT
  Age: 71 Year
  Sex: Male

DRUGS (4)
  1. RELUGOLIX [Suspect]
     Active Substance: RELUGOLIX
     Indication: Prostate cancer
     Dosage: 120 MILLIGRAM, QD, STRENGTH 120 MG
     Route: 048
  2. ROSUVASTATIN CALCIUM [Suspect]
     Active Substance: ROSUVASTATIN CALCIUM
     Indication: Product used for unknown indication
  3. COENZYME Q10 [Suspect]
     Active Substance: DIETARY SUPPLEMENT\UBIDECARENONE
     Indication: Product used for unknown indication
  4. FISH OIL [Suspect]
     Active Substance: FISH OIL
     Indication: Product used for unknown indication

REACTIONS (4)
  - Dizziness postural [Not Recovered/Not Resolved]
  - Palpitations [Unknown]
  - Chest pain [Unknown]
  - Abdominal pain lower [Unknown]

NARRATIVE: CASE EVENT DATE: 20220715
